FAERS Safety Report 4810990-0 (Version None)
Quarter: 2005Q4

REPORT INFORMATION
  Report Type: 
  Country: None (occurrence: None)
  Receive Date: 20051025
  Receipt Date: 20051019
  Transmission Date: 20060501
  Serious: No
  Sender: FDA-Public Use
  Company Number: STA-AE-05-031

PATIENT
  Age: 73 Year
  Sex: Female

DRUGS (6)
  1. DILTIAZEM HCL [Suspect]
     Indication: HYPERTENSION
     Dosage: 180 MG/D
  2. METOPROLOL [Concomitant]
  3. LISINOPRIL [Concomitant]
  4. HYDROCHLOROTHIAZIDE [Concomitant]
  5. FELODIPINE [Concomitant]
  6. CLONIDINE [Concomitant]

REACTIONS (7)
  - ASTHENIA [None]
  - BLOOD PRESSURE INCREASED [None]
  - DIZZINESS [None]
  - DYSPNOEA EXERTIONAL [None]
  - EXTRASYSTOLES [None]
  - FATIGUE [None]
  - SINUS BRADYCARDIA [None]
